FAERS Safety Report 10452476 (Version 1)
Quarter: 2014Q3

REPORT INFORMATION
  Report Type: Report from Study
  Country: IR (occurrence: IR)
  Receive Date: 20140915
  Receipt Date: 20140915
  Transmission Date: 20150326
  Serious: Yes (Other)
  Sender: FDA-Public Use
  Company Number: IR-BAYER-2014-132632

PATIENT
  Sex: Female

DRUGS (2)
  1. ASPIRIN. [Suspect]
     Active Substance: ASPIRIN
     Indication: MAJOR DEPRESSION
     Dosage: 160 MG, DAILY
  2. CITALOPRAM [Interacting]
     Active Substance: CITALOPRAM HYDROBROMIDE
     Indication: MAJOR DEPRESSION
     Dosage: 10 MG/DAY AND TITRATED TO 20MG/DAY OVER 4 DAYS

REACTIONS (6)
  - Drug ineffective [None]
  - Depression [None]
  - Akathisia [Recovered/Resolved]
  - Inhibitory drug interaction [None]
  - Anxiety [Recovered/Resolved]
  - Restlessness [Recovered/Resolved]
